FAERS Safety Report 15931290 (Version 1)
Quarter: 2019Q1

REPORT INFORMATION
  Report Type: Spontaneous
  Country: US (occurrence: US)
  Receive Date: 20190116
  Receipt Date: 20190116
  Transmission Date: 20190417
  Serious: No
  Sender: FDA-Public Use
  Company Number: None

PATIENT
  Age: 70 Year
  Sex: Female

DRUGS (4)
  1. QUINAPRIL. [Concomitant]
     Active Substance: QUINAPRIL
  2. IBRANCE [Suspect]
     Active Substance: PALBOCICLIB
     Route: 048
     Dates: start: 20170101
  3. AMLODIPINE [Concomitant]
     Active Substance: AMLODIPINE BESYLATE
  4. FASLODEX [Concomitant]
     Active Substance: FULVESTRANT

REACTIONS (2)
  - Joint swelling [None]
  - Thrombosis [None]

NARRATIVE: CASE EVENT DATE: 20190115
